FAERS Safety Report 4570453-7 (Version None)
Quarter: 2005Q1

REPORT INFORMATION
  Report Type: 
  Country: None (occurrence: None)
  Receive Date: 20050204
  Receipt Date: 20050125
  Transmission Date: 20050727
  Serious: Yes (Disabling, Other)
  Sender: FDA-Public Use
  Company Number: GB-JNJFOC-20050106697

PATIENT
  Age: 12 Year
  Sex: Male
  Weight: 36.5 kg

DRUGS (2)
  1. RISPERDAL [Suspect]
     Route: 049
  2. RISPERDAL [Suspect]
     Indication: ABNORMAL BEHAVIOUR
     Route: 049

REACTIONS (5)
  - BUNDLE BRANCH BLOCK RIGHT [None]
  - DIZZINESS [None]
  - MALAISE [None]
  - ORTHOSTATIC HYPOTENSION [None]
  - PALPITATIONS [None]
